FAERS Safety Report 5430646-3 (Version None)
Quarter: 2007Q3

REPORT INFORMATION
  Report Type: 
  Country: None (occurrence: None)
  Receive Date: 20070830
  Receipt Date: 20070822
  Transmission Date: 20080115
  Serious: Yes (Death, Other)
  Sender: FDA-Public Use
  Company Number: JP-JNJFOC-20070502309

PATIENT
  Sex: Female
  Weight: 40 kg

DRUGS (23)
  1. REMICADE [Suspect]
     Route: 042
  2. REMICADE [Suspect]
     Route: 042
  3. REMICADE [Suspect]
     Indication: RHEUMATOID ARTHRITIS
     Route: 042
  4. METHOTREXATE [Suspect]
     Indication: RHEUMATOID ARTHRITIS
     Route: 048
  5. MEDROL [Suspect]
     Indication: INTERSTITIAL LUNG DISEASE
     Route: 048
  6. MEDROL [Suspect]
     Indication: RHEUMATOID ARTHRITIS
     Route: 048
  7. ASPIRIN [Suspect]
     Indication: CEREBRAL INFARCTION
     Route: 048
  8. RISEDRONATE SODIUM [Suspect]
     Indication: OSTEOPOROSIS
     Route: 048
  9. TEGRETOL [Suspect]
     Indication: CONVULSION
     Route: 048
  10. ISCOTIN [Suspect]
     Indication: PNEUMONIA
     Dosage: 100 MG
     Route: 048
  11. MOBIC [Suspect]
     Indication: RHEUMATOID ARTHRITIS
     Route: 048
  12. CEFAMEZIN [Suspect]
     Indication: SURGERY
     Dosage: 2GM
  13. CYTOTEC [Suspect]
     Indication: GASTRIC ULCER
     Dosage: 200 MG
     Route: 048
  14. FOLIAMIN [Suspect]
     Indication: SUPPLEMENTATION THERAPY
     Route: 048
  15. PYDOXAL [Suspect]
     Indication: SUPPLEMENTATION THERAPY
     Dosage: 20MG
     Route: 048
  16. LANSOPRAZOLE [Suspect]
     Indication: THERAPEUTIC PROCEDURE
     Route: 048
  17. SOLU-MEDROL [Concomitant]
  18. SOLU-MEDROL [Concomitant]
  19. SOLU-MEDROL [Concomitant]
     Indication: INTERSTITIAL LUNG DISEASE
  20. METHYLPREDNISOLONE 16MG TAB [Concomitant]
     Indication: INTERSTITIAL LUNG DISEASE
     Route: 048
  21. PROGRAF [Concomitant]
     Indication: INTERSTITIAL LUNG DISEASE
     Route: 048
  22. DENOSINE [Concomitant]
     Indication: CYTOMEGALOVIRUS INFECTION
     Dosage: FOR IV INFUSION
  23. CARBENIN [Concomitant]
     Indication: PNEUMONIA
     Dosage: 0.5GM

REACTIONS (1)
  - PULMONARY FIBROSIS [None]
